FAERS Safety Report 17068149 (Version 1)
Quarter: 2019Q4

REPORT INFORMATION
  Report Type: Spontaneous
  Country: NL (occurrence: NL)
  Receive Date: 20191122
  Receipt Date: 20191122
  Transmission Date: 20200122
  Serious: Yes (Other)
  Sender: FDA-Public Use
  Company Number: NL-009507513-1911NLD003554

PATIENT
  Age: 24 Year
  Sex: Male

DRUGS (2)
  1. BRIDION [Suspect]
     Active Substance: SUGAMMADEX
     Indication: LAPAROSCOPY
     Dosage: UNK
     Route: 042
     Dates: start: 20191016, end: 20191016
  2. ESMERON [Suspect]
     Active Substance: ROCURONIUM BROMIDE
     Indication: LAPAROSCOPY
     Dosage: 150 MILLIGRAM
     Route: 042
     Dates: start: 20191017, end: 20191017

REACTIONS (3)
  - Post procedural haemorrhage [Unknown]
  - Drug ineffective [Unknown]
  - Overdose [Unknown]

NARRATIVE: CASE EVENT DATE: 20191016
